FAERS Safety Report 15708290 (Version 1)
Quarter: 2018Q4

REPORT INFORMATION
  Report Type: Spontaneous
  Country: US (occurrence: US)
  Receive Date: 20181128
  Receipt Date: 20181128
  Transmission Date: 20190205
  Serious: No
  Sender: FDA-Public Use
  Company Number: None

PATIENT
  Age: 71 Year
  Sex: Female

DRUGS (1)
  1. AUSTEDO [Suspect]
     Active Substance: DEUTETRABENAZINE
     Dates: start: 201809

REACTIONS (4)
  - Dysphonia [None]
  - Arthralgia [None]
  - Nausea [None]
  - Tremor [None]

NARRATIVE: CASE EVENT DATE: 20181031
